FAERS Safety Report 10951640 (Version 2)
Quarter: 2015Q2

REPORT INFORMATION
  Report Type: Spontaneous
  Country: US (occurrence: US)
  Receive Date: 20150324
  Receipt Date: 20150525
  Transmission Date: 20150821
  Serious: Yes (Other)
  Sender: FDA-Public Use
  Company Number: US-JNJFOC-20120808615

PATIENT
  Sex: Male

DRUGS (1)
  1. RISPERIDONE. [Suspect]
     Active Substance: RISPERIDONE
     Indication: SCHIZOAFFECTIVE DISORDER
     Route: 048
     Dates: end: 2012

REACTIONS (6)
  - Gastrointestinal disorder [Not Recovered/Not Resolved]
  - Schizoaffective disorder [Recovering/Resolving]
  - Abnormal loss of weight [Recovered/Resolved]
  - Muscle spasms [Recovering/Resolving]
  - Vomiting [Recovered/Resolved]
  - Pain [Recovering/Resolving]
